FAERS Safety Report 19168837 (Version 1)
Quarter: 2021Q2

REPORT INFORMATION
  Report Type: Spontaneous
  Country: US (occurrence: US)
  Receive Date: 20210422
  Receipt Date: 20210422
  Transmission Date: 20210717
  Serious: Yes (Life-Threatening, Hospitalization, Other)
  Sender: FDA-Public Use
  Company Number: None

PATIENT
  Age: 47 Year
  Sex: Female
  Weight: 83.25 kg

DRUGS (5)
  1. AIMOVIG [Suspect]
     Active Substance: ERENUMAB-AOOE
     Indication: MIGRAINE
     Dosage: ?          OTHER FREQUENCY:ONCE A MONTH;OTHER ROUTE:INJECTION (USUALLY INTO ABDOMEN)?
     Dates: start: 20180918, end: 20210308
  2. MAGNESIUM [Concomitant]
     Active Substance: MAGNESIUM
  3. MULTI?VITAMIN [Concomitant]
     Active Substance: .ALPHA.-TOCOPHEROL ACETATE, DL-\ASCORBIC ACID\CYANOCOBALAMIN\FLUORIDE ION\FOLIC ACID\NIACIN\PYRIDOXINE\RIBOFLAVIN\THIAMINE\VITAMIN A\VITAMIN D
  4. ALLERGY [Concomitant]
     Active Substance: UNSPECIFIED INGREDIENT
  5. VITAMIN D [Concomitant]
     Active Substance: VITAMIN D NOS

REACTIONS (12)
  - Pain in extremity [None]
  - Malaise [None]
  - Migraine [None]
  - Feeling abnormal [None]
  - Paraesthesia [None]
  - Hypoaesthesia oral [None]
  - General physical health deterioration [None]
  - Blood pressure increased [None]
  - Hypoaesthesia [None]
  - Speech disorder [None]
  - Pain [None]
  - Weight increased [None]

NARRATIVE: CASE EVENT DATE: 20210319
